FAERS Safety Report 5911960-1 (Version None)
Quarter: 2008Q4

REPORT INFORMATION
  Report Type: 
  Country: None (occurrence: None)
  Receive Date: 20081008
  Receipt Date: 20080930
  Transmission Date: 20090506
  Serious: Yes (Other)
  Sender: FDA-Public Use
  Company Number: PHHY2008BR23197

PATIENT
  Age: 33 Year
  Sex: Male

DRUGS (1)
  1. TOFRANIL [Suspect]
     Dosage: 25 MG, UNK

REACTIONS (4)
  - HYPOKINESIA [None]
  - MOVEMENT DISORDER [None]
  - VERTIGO [None]
  - VISION BLURRED [None]
